FAERS Safety Report 5848333-6 (Version None)
Quarter: 2008Q3

REPORT INFORMATION
  Report Type: 
  Country: None (occurrence: None)
  Receive Date: 20080818
  Receipt Date: 20080721
  Transmission Date: 20090109
  Serious: No
  Sender: FDA-Public Use
  Company Number: US-BAYER-200829628NA

PATIENT
  Age: 59 Year
  Sex: Male

DRUGS (3)
  1. MAGNEVIST [Suspect]
     Indication: NUCLEAR MAGNETIC RESONANCE IMAGING BRAIN
     Dosage: TOTAL DAILY DOSE: 16  ML
     Dates: start: 20080717, end: 20080717
  2. VOLTAREN [Concomitant]
     Dosage: AS USED: 75  MG
  3. NORFLEX [Concomitant]

REACTIONS (2)
  - RASH [None]
  - URTICARIA [None]
